FAERS Safety Report 5168734-1 (Version None)
Quarter: 2006Q4

REPORT INFORMATION
  Report Type: 
  Country: None (occurrence: None)
  Receive Date: 20061211
  Receipt Date: 20060913
  Transmission Date: 20070319
  Serious: Yes (Death, Hospitalization)
  Sender: FDA-Public Use
  Company Number: PHBS2006JP14101

PATIENT
  Age: 80 Year
  Sex: Male

DRUGS (3)
  1. NEORAL [Suspect]
     Indication: NEPHROTIC SYNDROME
     Dosage: UNK, UNK
     Route: 048
     Dates: start: 20040901, end: 20050301
  2. ADRENOCORTICOTROPHIC HORMONE [Concomitant]
     Indication: NEPHROTIC SYNDROME
     Route: 048
     Dates: start: 20040901
  3. STEROIDS NOS [Suspect]

REACTIONS (3)
  - INFECTION [None]
  - LUPUS NEPHRITIS [None]
  - RENAL IMPAIRMENT [None]
